FAERS Safety Report 26178314 (Version 1)
Quarter: 2025Q4

REPORT INFORMATION
  Report Type: Spontaneous
  Country: US (occurrence: US)
  Receive Date: 20251219
  Receipt Date: 20251219
  Transmission Date: 20260118
  Serious: Yes (Death, Disabling, Other)
  Sender: AMGEN
  Company Number: US-AMGEN-USASP2025245503

PATIENT

DRUGS (3)
  1. RITUXIMAB [Suspect]
     Active Substance: RITUXIMAB
     Indication: Autoimmune cerebellar ataxia
     Dosage: 1000 MILLIGRAM, Q2WK (REPEATED AFTER 2 WEEKS)
     Route: 065
  2. RITUXIMAB [Suspect]
     Active Substance: RITUXIMAB
     Dosage: 1000 MILLIGRAM, Q6MO
     Route: 065
  3. PREDNISONE [Suspect]
     Active Substance: PREDNISONE
     Indication: Autoimmune cerebellar ataxia
     Dosage: UNK (TAPER)
     Route: 048

REACTIONS (5)
  - Death [Fatal]
  - Autoimmune cerebellar ataxia [Unknown]
  - Wheelchair user [Unknown]
  - Drug effective for unapproved indication [Unknown]
  - Off label use [Unknown]
